APPROVED DRUG PRODUCT: BETHANECHOL CHLORIDE
Active Ingredient: BETHANECHOL CHLORIDE
Strength: 10MG
Dosage Form/Route: TABLET;ORAL
Application: A040553 | Product #001
Applicant: ACTAVIS ELIZABETH LLC
Approved: Oct 28, 2004 | RLD: No | RS: No | Type: DISCN